FAERS Safety Report 18913229 (Version 1)
Quarter: 2021Q1

REPORT INFORMATION
  Report Type: Spontaneous
  Country: TR (occurrence: TR)
  Receive Date: 20210219
  Receipt Date: 20210219
  Transmission Date: 20210420
  Serious: Yes (Hospitalization, Other)
  Sender: FDA-Public Use
  Company Number: TR-MICRO LABS LIMITED-ML2021-00477

PATIENT
  Age: 16 Year
  Sex: Female

DRUGS (7)
  1. AMPICILLIN [Suspect]
     Active Substance: AMPICILLIN
     Dosage: 4 TABLETS
  2. THIOCOLCHICOSIDE [Suspect]
     Active Substance: THIOCOLCHICOSIDE
     Dosage: 5 CAPSULES
  3. DICLOFENAC [Suspect]
     Active Substance: DICLOFENAC
     Dosage: 20 TABLETS
  4. CEFPROZIL. [Suspect]
     Active Substance: CEFPROZIL
     Dosage: 20 TABLETS
  5. CHLORPHENAMINE/OXOLAMINE/PARACETAMOL [Suspect]
     Active Substance: ACETAMINOPHEN\CHLORPHENIRAMINE\OXOLAMINE
     Dosage: 15 TABLETS
  6. FLURBIPROFEN. [Suspect]
     Active Substance: FLURBIPROFEN
     Dosage: 20 TABLETS
  7. CEFDINIR. [Suspect]
     Active Substance: CEFDINIR
     Dosage: 20 TABLETS

REACTIONS (5)
  - Suicide attempt [Unknown]
  - Altered state of consciousness [Recovering/Resolving]
  - Intentional overdose [Unknown]
  - Toxicity to various agents [Recovering/Resolving]
  - Abdominal pain [Recovering/Resolving]
